FAERS Safety Report 15434053 (Version 1)
Quarter: 2018Q3

REPORT INFORMATION
  Report Type: Spontaneous
  Country: US (occurrence: US)
  Receive Date: 20180921
  Receipt Date: 20180921
  Transmission Date: 20181010
  Serious: Yes (Hospitalization)
  Sender: FDA-Public Use
  Company Number: None

PATIENT
  Age: 68 Year
  Sex: Female

DRUGS (13)
  1. VIT C COMPLX [Concomitant]
  2. PREDNISONE. [Concomitant]
     Active Substance: PREDNISONE
  3. LORATADINE. [Concomitant]
     Active Substance: LORATADINE
  4. ACETAMIN [Concomitant]
     Active Substance: ACETAMINOPHEN
  5. PRAVASTATIN. [Concomitant]
     Active Substance: PRAVASTATIN
  6. CYCLOSPORINE. [Concomitant]
     Active Substance: CYCLOSPORINE
  7. PROMACTA [Suspect]
     Active Substance: ELTROMBOPAG OLAMINE
     Indication: APLASTIC ANAEMIA
     Route: 048
     Dates: start: 201809
  8. DUCOSATE [Concomitant]
  9. VIT D3/VIT C [Concomitant]
  10. TYLENOL [Concomitant]
     Active Substance: ACETAMINOPHEN
  11. LORAZEPAM. [Concomitant]
     Active Substance: LORAZEPAM
  12. LISINOPRIL. [Concomitant]
     Active Substance: LISINOPRIL
  13. HYDOROCHLOROT [Concomitant]

REACTIONS (1)
  - Hospitalisation [None]

NARRATIVE: CASE EVENT DATE: 20180919
